FAERS Safety Report 5327046-3 (Version None)
Quarter: 2007Q2

REPORT INFORMATION
  Report Type: 
  Country: None (occurrence: None)
  Receive Date: 20070517
  Receipt Date: 20070510
  Transmission Date: 20071010
  Serious: Yes (Hospitalization)
  Sender: FDA-Public Use
  Company Number: PHEH2007US05798

PATIENT
  Age: 52 Year
  Sex: Female
  Weight: 59.41 kg

DRUGS (3)
  1. ERYTHROMYCIN [Suspect]
     Route: 065
  2. LISINOPRIL [Concomitant]
  3. ZELNORM [Suspect]
     Indication: IMPAIRED GASTRIC EMPTYING
     Dosage: 6 MG, BID
     Route: 048
     Dates: start: 20061101, end: 20070405

REACTIONS (3)
  - CHEST PAIN [None]
  - SYNCOPE [None]
  - VENTRICULAR TACHYCARDIA [None]
